FAERS Safety Report 22519727 (Version 1)
Quarter: 2023Q2

REPORT INFORMATION
  Report Type: Spontaneous
  Country: US (occurrence: US)
  Receive Date: 20230605
  Receipt Date: 20230605
  Transmission Date: 20230721
  Serious: Yes (Hospitalization, Other)
  Sender: FDA-Public Use
  Company Number: US-BAYER-2023A074384

PATIENT
  Age: 67 Year
  Sex: Male

DRUGS (1)
  1. REGORAFENIB [Suspect]
     Active Substance: REGORAFENIB
     Indication: Hepatocellular carcinoma
     Dosage: CYCLE 3 - 80 MG, QD  FOR 21 DAYS
     Route: 048
     Dates: start: 20230508, end: 20230518

REACTIONS (7)
  - Myocardial infarction [None]
  - Dural arteriovenous fistula [None]
  - Cerebral venous sinus thrombosis [None]
  - Dizziness [None]
  - Fall [None]
  - Troponin increased [None]
  - Hypotension [None]
